FAERS Safety Report 4609692-5 (Version None)
Quarter: 2005Q1

REPORT INFORMATION
  Report Type: 
  Country: None (occurrence: None)
  Receive Date: 20050314
  Receipt Date: 20050307
  Transmission Date: 20050727
  Serious: Yes (Hospitalization)
  Sender: FDA-Public Use
  Company Number: 2004AP05755

PATIENT
  Age: 63 Year
  Sex: Male

DRUGS (5)
  1. NEXIUM [Suspect]
     Indication: DYSPEPSIA
     Dates: start: 20031130
  2. RABEPRAZOLE SODIUM [Suspect]
     Indication: NAUSEA
     Dates: end: 20031130
  3. AVAPRO [Concomitant]
  4. NORVASC [Concomitant]
  5. ROFECOXIB [Concomitant]

REACTIONS (11)
  - DRUG INEFFECTIVE [None]
  - DYSPEPSIA [None]
  - FATIGUE [None]
  - HAEMATURIA [None]
  - NAUSEA [None]
  - NEPHRITIS INTERSTITIAL [None]
  - NORMOCHROMIC NORMOCYTIC ANAEMIA [None]
  - OLIGURIA [None]
  - PERITONEAL DIALYSIS [None]
  - VOMITING [None]
  - WEIGHT DECREASED [None]
